FAERS Safety Report 16806753 (Version 2)
Quarter: 2019Q4

REPORT INFORMATION
  Report Type: Spontaneous
  Country: CH (occurrence: CH)
  Receive Date: 20190913
  Receipt Date: 20191106
  Transmission Date: 20200122
  Serious: Yes (Other)
  Sender: FDA-Public Use
  Company Number: CH-ANIPHARMA-2019-CH-000034

PATIENT
  Age: 72 Year
  Sex: Female

DRUGS (2)
  1. ATACAND [Suspect]
     Active Substance: CANDESARTAN CILEXETIL
     Indication: BLOOD PRESSURE MEASUREMENT
     Dosage: 4 MG BID
     Route: 048
     Dates: start: 201905
  2. VITAMIN D [Concomitant]
     Active Substance: VITAMIN D NOS
     Dosage: UNKNOWN
     Route: 065

REACTIONS (3)
  - Feeling abnormal [Unknown]
  - Thrombosis [Unknown]
  - Blood creatinine increased [Recovered/Resolved]
